FAERS Safety Report 9913603 (Version 2)
Quarter: 2014Q1

REPORT INFORMATION
  Report Type: Spontaneous
  Country: US (occurrence: None)
  Receive Date: 20140218
  Receipt Date: 20140318
  Transmission Date: 20141002
  Serious: No
  Sender: FDA-Public Use
  Company Number: 2014-00028

PATIENT
  Age: 57 Year
  Sex: Male

DRUGS (2)
  1. ZICAM COLD REMEDY ORAL MIST [Suspect]
     Indication: NASOPHARYNGITIS
     Route: 048
     Dates: start: 20131211, end: 20131228
  2. ZICAM COLD REMEDY ORAL MIST [Suspect]
     Indication: INFLUENZA
     Route: 048
     Dates: start: 20131211, end: 20131228

REACTIONS (2)
  - Ageusia [None]
  - Anosmia [None]
